FAERS Safety Report 24611982 (Version 3)
Quarter: 2024Q4

REPORT INFORMATION
  Report Type: Spontaneous
  Country: GB (occurrence: GB)
  Receive Date: 20241113
  Receipt Date: 20241115
  Transmission Date: 20250115
  Serious: Yes (Other)
  Sender: TEVA
  Company Number: GB-MHRA-TPP21354837C304635YC1730793931316

PATIENT
  Age: 43 Year
  Sex: Female
  Weight: 144 kg

DRUGS (12)
  1. AMLODIPINE [Suspect]
     Active Substance: AMLODIPINE BESYLATE
     Indication: Ill-defined disorder
     Dosage: (THIS IS FOR YOUR PROBLEM OF RAI, 5MG TABLETS, DAILY DOSE: 5MG DAILY
     Route: 065
     Dates: start: 20240409
  2. BECLOMETHASONE\FORMOTEROL [Concomitant]
     Active Substance: BECLOMETHASONE\FORMOTEROL
     Indication: Ill-defined disorder
     Dosage: PUFF
     Route: 055
     Dates: start: 20240409
  3. PREDNISOLONE [Concomitant]
     Active Substance: PREDNISOLONE
     Indication: Ill-defined disorder
     Dosage: SIX TABLETS TO BE TAKEN DAILY- THIS IS YOUR RES..., DAILY DOSE: 6 DOSAGE FORM
     Route: 065
     Dates: start: 20241001, end: 20241007
  4. MONTELUKAST [Concomitant]
     Active Substance: MONTELUKAST
     Indication: Ill-defined disorder
     Dosage: AT NIGHT (CHILDREN AGED OVER 15...,,DAILY DOSE: 1 DOSAGE FORM
     Route: 065
     Dates: start: 20241008, end: 20241105
  5. EASYCHAMBER SPACER [Concomitant]
     Indication: Ill-defined disorder
     Dosage: USE AS DIRECTED
     Route: 065
     Dates: start: 20241001
  6. ATORVASTATIN [Concomitant]
     Active Substance: ATORVASTATIN
     Indication: Ill-defined disorder
     Dosage: TAKE ONE AT NIGHT, DAILY DOSE: 1 DOSAGE FORM
     Route: 065
     Dates: start: 20240409
  7. DOXYCYCLINE [Concomitant]
     Active Substance: DOXYCYCLINE
     Indication: Ill-defined disorder
     Dosage: TWO NOW THEN ONE DAILY- THIS IS YOUR RESCUE PACK, DURATION: 6DAYS
     Route: 065
     Dates: start: 20241001, end: 20241006
  8. LINAGLIPTIN [Concomitant]
     Active Substance: LINAGLIPTIN
     Indication: Ill-defined disorder
     Dosage: TAKE ONE DAILY
     Route: 065
     Dates: start: 20240624
  9. ALBUTEROL [Concomitant]
     Active Substance: ALBUTEROL
     Indication: Ill-defined disorder
     Dosage: AS NEEDED (INHALE SLOWLY AND S...
     Route: 055
     Dates: start: 20240409
  10. NITROFURANTOIN [Concomitant]
     Active Substance: NITROFURANTOIN
     Indication: Ill-defined disorder
     Dosage: FOR 3/7,
     Route: 065
     Dates: start: 20240917
  11. RAMIPRIL [Concomitant]
     Active Substance: RAMIPRIL
     Indication: Ill-defined disorder
     Dosage: TAKE ONE DAILY
     Route: 065
     Dates: start: 20240409
  12. COCODAMOL [Concomitant]
     Active Substance: ACETAMINOPHEN\CODEINE PHOSPHATE
     Indication: Ill-defined disorder
     Dosage: TAKE ONE TO TWO TABLETS  4 TIMES/DAY,
     Route: 065
     Dates: start: 20240926, end: 20241010

REACTIONS (1)
  - Joint swelling [Recovering/Resolving]

NARRATIVE: CASE EVENT DATE: 20241105
